FAERS Safety Report 5605850-1 (Version None)
Quarter: 2008Q1

REPORT INFORMATION
  Report Type: 
  Country: None (occurrence: None)
  Receive Date: 20080129
  Receipt Date: 20080122
  Transmission Date: 20080703
  Serious: Yes (Other)
  Sender: FDA-Public Use
  Company Number: PHHY2008JP00978

PATIENT
  Sex: Female

DRUGS (1)
  1. NEORAL [Suspect]
     Indication: COLLAGEN DISORDER
     Dosage: UNK, UNK
     Route: 048
     Dates: start: 20070101

REACTIONS (1)
  - MANIA [None]
